FAERS Safety Report 4745519-9 (Version None)
Quarter: 2005Q3

REPORT INFORMATION
  Report Type: 
  Country: None (occurrence: None)
  Receive Date: 20050815
  Receipt Date: 20050708
  Transmission Date: 20060218
  Serious: Yes (Death, Other)
  Sender: FDA-Public Use
  Company Number: US-MERCK-0507USA01168

PATIENT
  Age: 62 Year
  Sex: Male

DRUGS (6)
  1. VIOXX [Suspect]
     Indication: ARTHRITIS
     Route: 048
     Dates: start: 20000901, end: 20010701
  2. ALBUTEROL [Concomitant]
     Route: 065
  3. PLAVIX [Concomitant]
     Route: 065
  4. PLETAL [Concomitant]
     Route: 065
  5. NIASPAN [Concomitant]
     Route: 065
  6. NITROGLYCERIN [Concomitant]
     Route: 065

REACTIONS (4)
  - ACUTE MYOCARDIAL INFARCTION [None]
  - DEATH [None]
  - MYOCARDIAL INFARCTION [None]
  - OVERDOSE [None]
